FAERS Safety Report 5823911-9 (Version None)
Quarter: 2008Q3

REPORT INFORMATION
  Report Type: 
  Country: None (occurrence: None)
  Receive Date: 20080724
  Receipt Date: 20080715
  Transmission Date: 20090109
  Serious: Yes (Hospitalization)
  Sender: FDA-Public Use
  Company Number: 19749

PATIENT
  Sex: Female

DRUGS (10)
  1. LEUCOVORIN CALCIUM [Suspect]
     Indication: NEOPLASM MALIGNANT
     Dates: start: 20080527, end: 20080527
  2. LEUCOVORIN CALCIUM [Suspect]
     Indication: NEOPLASM MALIGNANT
     Dates: start: 20080610, end: 20080610
  3. LEUCOVORIN CALCIUM [Suspect]
     Indication: NEOPLASM MALIGNANT
     Dates: start: 20080513, end: 20080513
  4. ELOXATIN [Suspect]
     Indication: NEOPLASM MALIGNANT
     Dosage: 85 MG/M2 PER_CYCLE IV
     Route: 042
     Dates: start: 20080527, end: 20080527
  5. ELOXATIN [Suspect]
     Indication: NEOPLASM MALIGNANT
     Dosage: 85 MG/M2 PER_CYCLE IV
     Route: 042
     Dates: start: 20080610, end: 20080610
  6. ELOXATIN [Suspect]
     Indication: NEOPLASM MALIGNANT
     Dosage: 85 MG/M2 PER_CYCLE IV
     Route: 042
     Dates: start: 20080513, end: 20080513
  7. FLUOROURACIL [Suspect]
     Indication: NEOPLASM MALIGNANT
     Dates: start: 20080527, end: 20080527
  8. FLUOROURACIL [Suspect]
     Indication: NEOPLASM MALIGNANT
     Dates: start: 20080610, end: 20080610
  9. FLUOROURACIL [Suspect]
     Indication: NEOPLASM MALIGNANT
     Dates: start: 20080513, end: 20080513
  10. CALCIUM W/MAGNESIUM [Concomitant]

REACTIONS (2)
  - ABDOMINAL PAIN [None]
  - PERIPHERAL MOTOR NEUROPATHY [None]
